FAERS Safety Report 6398494-8 (Version None)
Quarter: 2009Q4

REPORT INFORMATION
  Report Type: 
  Country: None (occurrence: None)
  Receive Date: 20091013
  Receipt Date: 20091008
  Transmission Date: 20100525
  Serious: Yes (Hospitalization, Other)
  Sender: FDA-Public Use
  Company Number: B0597457A

PATIENT
  Age: 34 Year
  Sex: Male

DRUGS (6)
  1. AUGMENTIN '125' [Suspect]
     Indication: ANTIBIOTIC PROPHYLAXIS
     Route: 042
     Dates: start: 20090808, end: 20090814
  2. ENOXAPARINA [Suspect]
     Indication: CARDIOVASCULAR EVENT PROPHYLAXIS
     Route: 058
     Dates: start: 20090808, end: 20090813
  3. NOLOTIL [Concomitant]
     Indication: PAIN
     Route: 042
     Dates: start: 20090808, end: 20090808
  4. PARACETAMOL [Concomitant]
     Indication: PAIN
     Route: 042
     Dates: start: 20090808, end: 20090808
  5. FUROSEMIDE [Concomitant]
     Indication: DRUG USE FOR UNKNOWN INDICATION
     Route: 042
     Dates: start: 20090808, end: 20090813
  6. PANTOPRAZOL [Concomitant]
     Indication: GASTRITIS PROPHYLAXIS
     Route: 042
     Dates: start: 20090808

REACTIONS (3)
  - GUILLAIN-BARRE SYNDROME [None]
  - PLATELET COUNT DECREASED [None]
  - THROMBOCYTOPENIA [None]
